FAERS Safety Report 8107697-3 (Version None)
Quarter: 2012Q1

REPORT INFORMATION
  Report Type: 
  Country: None (occurrence: None)
  Receive Date: 20120202
  Receipt Date: 20120127
  Transmission Date: 20120608
  Serious: Yes (Life-Threatening, Other)
  Sender: FDA-Public Use
  Company Number: US-ROXANE LABORATORIES, INC.-2012-RO-00562RO

PATIENT
  Age: 16 Year
  Sex: Male

DRUGS (2)
  1. METHADONE HCL [Suspect]
     Route: 048
  2. NALOXONE [Suspect]
     Indication: REVERSAL OF OPIATE ACTIVITY

REACTIONS (5)
  - CIRCULATORY COLLAPSE [None]
  - SUBCUTANEOUS EMPHYSEMA [None]
  - RESPIRATORY FAILURE [None]
  - PULMONARY OEDEMA [None]
  - TOXICITY TO VARIOUS AGENTS [None]
